FAERS Safety Report 21509644 (Version 2)
Quarter: 2022Q4

REPORT INFORMATION
  Report Type: Report from Study
  Country: US (occurrence: US)
  Receive Date: 20221026
  Receipt Date: 20221110
  Transmission Date: 20230113
  Serious: Yes (Death, Hospitalization, Other)
  Sender: FDA-Public Use
  Company Number: US-BRISTOL-MYERS SQUIBB COMPANY-2022-126246

PATIENT
  Age: 68 Year
  Sex: Male
  Weight: 53.20 kg

DRUGS (1)
  1. BA-3011 [Suspect]
     Active Substance: BA-3011
     Indication: Lung adenocarcinoma
     Route: 042
     Dates: start: 20220916, end: 20220930

REACTIONS (1)
  - Hypoxia [Fatal]

NARRATIVE: CASE EVENT DATE: 20221003
